FAERS Safety Report 5828682-8 (Version None)
Quarter: 2008Q3

REPORT INFORMATION
  Report Type: 
  Country: None (occurrence: None)
  Receive Date: 20080731
  Receipt Date: 20080724
  Transmission Date: 20090109
  Serious: Yes (Death)
  Sender: FDA-Public Use
  Company Number: KP-WATSON-2008-04524

PATIENT
  Age: 74 Year
  Sex: Male

DRUGS (2)
  1. CARBOPLATIN (WATSON LABORATORIES) [Suspect]
     Indication: MESOTHELIOMA
     Dosage: UNK
     Route: 065
     Dates: start: 20080101, end: 20080101
  2. PEMETREXED [Suspect]
     Indication: MESOTHELIOMA
     Dosage: UNK
     Route: 065
     Dates: start: 20080101, end: 20080101

REACTIONS (1)
  - TUMOUR LYSIS SYNDROME [None]
